FAERS Safety Report 4335623-1 (Version None)
Quarter: 2004Q2

REPORT INFORMATION
  Report Type: 
  Country: None (occurrence: None)
  Receive Date: 20040409
  Receipt Date: 20040401
  Transmission Date: 20050107
  Serious: Yes (Death)
  Sender: FDA-Public Use
  Company Number: SE-MERCK-0404SWE00001

PATIENT
  Age: 77 Year
  Sex: Male

DRUGS (3)
  1. LANSOPRAZOLE [Concomitant]
     Route: 065
  2. VIOXX [Suspect]
     Indication: PAIN
     Route: 048
     Dates: start: 20030613, end: 20030615
  3. SOTALOL HYDROCHLORIDE [Concomitant]
     Route: 065

REACTIONS (3)
  - CORONARY ARTERY ATHEROSCLEROSIS [None]
  - MYOCARDIAL INFARCTION [None]
  - SUDDEN DEATH [None]
